FAERS Safety Report 24829153 (Version 1)
Quarter: 2025Q1

REPORT INFORMATION
  Report Type: Report from Study
  Country: IN (occurrence: IN)
  Receive Date: 20250110
  Receipt Date: 20250110
  Transmission Date: 20250409
  Serious: Yes (Other)
  Sender: ROCHE
  Company Number: IN-ROCHE-10000057225

PATIENT
  Age: 57 Year
  Sex: Female

DRUGS (2)
  1. PHESGO [Suspect]
     Active Substance: HYALURONIDASE-ZZXF\PERTUZUMAB\TRASTUZUMAB
     Indication: Breast cancer
     Route: 058
     Dates: start: 20240628
  2. PHESGO [Suspect]
     Active Substance: HYALURONIDASE-ZZXF\PERTUZUMAB\TRASTUZUMAB
     Route: 058

REACTIONS (10)
  - Off label use [Unknown]
  - Breast mass [Unknown]
  - Metastases to lymph nodes [Unknown]
  - Modified radical mastectomy [Unknown]
  - Neoplasm [Unknown]
  - Invasive ductal breast carcinoma [Unknown]
  - Cellulitis [Unknown]
  - Incision site cellulitis [Unknown]
  - Incision site abscess [Unknown]
  - Axillary lymphadenectomy [Unknown]

NARRATIVE: CASE EVENT DATE: 20241030
